FAERS Safety Report 9178192 (Version 1)
Quarter: 2012Q4

REPORT INFORMATION
  Report Type: 
  Country: US (occurrence: US)
  Receive Date: 20121024
  Receipt Date: 20121024
  Transmission Date: 20130627
  Serious: Yes (Other)
  Sender: FDA-Public Use
  Company Number: US-RB-034998-11

PATIENT
  Age: 28 None
  Sex: Female

DRUGS (5)
  1. SUBUTEX [Suspect]
     Indication: PRODUCT USED FOR UNKNOWN INDICATION
     Route: 065
     Dates: start: 20111121, end: 20111211
  2. SUBOXONE FILM [Suspect]
     Indication: PRODUCT USED FOR UNKNOWN INDICATION
     Dosage: Took ^on and off^
     Route: 060
     Dates: start: 201108, end: 20111117
  3. SUBOXONE FILM [Suspect]
     Route: 060
     Dates: start: 20111212
  4. PRENATAL VITAMINS [Concomitant]
     Indication: PRODUCT USED FOR UNKNOWN INDICATION
     Dosage: Dosage details not provided
     Route: 065
     Dates: start: 201103, end: 20120827
  5. IRON TABLETS [Concomitant]
     Indication: PRODUCT USED FOR UNKNOWN INDICATION
     Dosage: Dosage details not provided
     Route: 065
     Dates: start: 201103, end: 20120827

REACTIONS (5)
  - Umbilical cord around neck [Recovered/Resolved]
  - Complication of delivery [Recovered/Resolved]
  - Drug withdrawal syndrome [Not Recovered/Not Resolved]
  - Substance abuse [Recovered/Resolved]
  - Exposure during pregnancy [Recovered/Resolved]
